FAERS Safety Report 13297901 (Version 4)
Quarter: 2017Q2

REPORT INFORMATION
  Report Type: Spontaneous
  Country: IT (occurrence: IT)
  Receive Date: 20170306
  Receipt Date: 20170404
  Transmission Date: 20170830
  Serious: Yes (Other)
  Sender: FDA-Public Use
  Company Number: IT-CIPLA LTD.-2017IT02397

PATIENT

DRUGS (13)
  1. BOSENTAN. [Interacting]
     Active Substance: BOSENTAN
     Indication: PULMONARY ARTERIAL HYPERTENSION
     Dosage: 125 MG, BID
     Route: 065
  2. ATORVASTATIN [Suspect]
     Active Substance: ATORVASTATIN
     Dosage: 40 MG, QD
     Route: 065
  3. SILDENAFIL. [Interacting]
     Active Substance: SILDENAFIL
     Dosage: 40 MG, TID
     Route: 065
     Dates: start: 201205, end: 201303
  4. FUROSEMIDE. [Suspect]
     Active Substance: FUROSEMIDE
     Dosage: 25 MG, BID
     Route: 065
  5. TADALAFIL [Suspect]
     Active Substance: TADALAFIL
     Dosage: 40 MG, QD
     Route: 065
     Dates: start: 201303
  6. CANRENONE [Suspect]
     Active Substance: CANRENONE
     Dosage: 50 MG, QOD
     Route: 065
  7. OMEPRAZOLE. [Suspect]
     Active Substance: OMEPRAZOLE
     Dosage: 20 MG, QD
     Route: 065
  8. RITONAVIR. [Interacting]
     Active Substance: RITONAVIR
     Indication: HIV INFECTION
     Dosage: 100 MG, BID
     Route: 065
     Dates: start: 2006
  9. DIGOXIN. [Suspect]
     Active Substance: DIGOXIN
     Dosage: 0.125 MG, QD
     Route: 065
  10. SILDENAFIL. [Interacting]
     Active Substance: SILDENAFIL
     Indication: PULMONARY ARTERIAL HYPERTENSION
     Dosage: 20 MG, TID
     Route: 065
     Dates: start: 201003
  11. FOSAMPRENAVIR [Suspect]
     Active Substance: FOSAMPRENAVIR
     Indication: HIV INFECTION
     Dosage: 700 MG, BID
     Route: 065
     Dates: start: 2006
  12. ACENOCUMAROL [Suspect]
     Active Substance: ACENOCOUMAROL
     Dosage: UNK, ACCORDING TO INR
     Route: 065
  13. LAMIVUDINE/ZIDOVUDINE [Suspect]
     Active Substance: LAMIVUDINE\ZIDOVUDINE
     Indication: HIV INFECTION
     Dosage: 150/300 MG, 1 TABLET, BID
     Route: 065
     Dates: start: 2006

REACTIONS (6)
  - Pulmonary arterial hypertension [Recovered/Resolved]
  - Drug level increased [Unknown]
  - Haemoptysis [Recovered/Resolved]
  - Condition aggravated [Recovered/Resolved]
  - Off label use [Unknown]
  - Drug interaction [Unknown]

NARRATIVE: CASE EVENT DATE: 200707
